FAERS Safety Report 19406056 (Version 4)
Quarter: 2021Q2

REPORT INFORMATION
  Report Type: Report from Study
  Country: TR (occurrence: TR)
  Receive Date: 20210611
  Receipt Date: 20210630
  Transmission Date: 20210717
  Serious: Yes (Hospitalization)
  Sender: FDA-Public Use
  Company Number: TR-EISAI MEDICAL RESEARCH-EC-2021-094168

PATIENT
  Age: 71 Year
  Sex: Male
  Weight: 63 kg

DRUGS (10)
  1. PEMBROLIZUMAB. [Suspect]
     Active Substance: PEMBROLIZUMAB
     Indication: COLORECTAL CANCER
     Route: 042
     Dates: start: 20210526, end: 20210526
  2. BELOC [METOPROLOL TARTRATE] [Concomitant]
     Active Substance: METOPROLOL TARTRATE
     Dates: start: 201701
  3. CORASPIN [Concomitant]
     Active Substance: ASPIRIN
     Dates: start: 201701
  4. NOVOMIX [Concomitant]
     Active Substance: INSULIN ASPART
     Route: 030
     Dates: start: 20210501
  5. DELIX [RAMIPRIL] [Concomitant]
     Active Substance: RAMIPRIL
     Dates: start: 201701
  6. PLAVIX [Concomitant]
     Active Substance: CLOPIDOGREL BISULFATE
     Dates: start: 201801
  7. NOVOMIX [Concomitant]
     Active Substance: INSULIN ASPART
     Route: 030
     Dates: start: 20210501
  8. LOPERMID [Concomitant]
     Dates: start: 20210530, end: 20210530
  9. LENVATINIB [Suspect]
     Active Substance: LENVATINIB
     Indication: COLORECTAL CANCER
     Route: 048
     Dates: start: 20210526, end: 20210603
  10. LENVATINIB [Suspect]
     Active Substance: LENVATINIB
     Route: 048
     Dates: start: 20210611

REACTIONS (1)
  - Diarrhoea [Recovered/Resolved]

NARRATIVE: CASE EVENT DATE: 20210604
